FAERS Safety Report 5664225-X (Version None)
Quarter: 2008Q1

REPORT INFORMATION
  Report Type: 
  Country: None (occurrence: None)
  Receive Date: 20080314
  Receipt Date: 20080305
  Transmission Date: 20080703
  Serious: Yes (Other)
  Sender: FDA-Public Use
  Company Number: US-WYE-H02960608

PATIENT
  Age: 4 Year
  Sex: Male
  Weight: 24.06 kg

DRUGS (2)
  1. DIMETAPP COLD AND ALLERGY [Suspect]
     Indication: COUGH
     Dosage: 1 TEASPOON DAILY BEFORE BED
     Dates: start: 20080302, end: 20080304
  2. DIMETAPP COLD AND ALLERGY [Suspect]
     Indication: NASOPHARYNGITIS

REACTIONS (2)
  - BODY TEMPERATURE DECREASED [None]
  - DRUG ADMINISTRATION ERROR [None]
